FAERS Safety Report 5322547-6 (Version None)
Quarter: 2007Q1

REPORT INFORMATION
  Report Type: 
  Country: None (occurrence: None)
  Receive Date: 20070220
  Receipt Date: 20061206
  Transmission Date: 20070707
  Serious: No
  Sender: FDA-Public Use
  Company Number: TPA2006A02205

PATIENT
  Age: 66 Year
  Sex: Female
  Weight: 98.8842 kg

DRUGS (17)
  1. ROZEREM [Suspect]
     Indication: INSOMNIA
     Dosage: PER ORAL
     Route: 048
     Dates: start: 20061001
  2. HYDROCODONE (HYDROCODONE) [Concomitant]
  3. FENTANYL [Concomitant]
  4. POTASSIUM CHLORIDE [Concomitant]
  5. FUROSEMIDE [Concomitant]
  6. PLAVIX [Concomitant]
  7. VITAMIN D [Concomitant]
  8. PROMETHAZINE HYDROCHLORIDE TAB [Concomitant]
  9. DOXAZOSIN MESYLATE [Concomitant]
  10. LOVASTATIN [Concomitant]
  11. FOLIC ACID [Concomitant]
  12. LISINOPRIL [Concomitant]
  13. LORATADINE [Concomitant]
  14. LEVOXYL [Concomitant]
  15. CALCIUM (CALCIUM) [Concomitant]
  16. CENTRUM (VITAMINS NOS, MINERALS NOS) [Concomitant]
  17. FISH OIL (FISH OIL) [Concomitant]

REACTIONS (1)
  - DRUG INEFFECTIVE [None]
